FAERS Safety Report 17530738 (Version 1)
Quarter: 2020Q1

REPORT INFORMATION
  Report Type: Spontaneous
  Country: US (occurrence: US)
  Receive Date: 20200303
  Receipt Date: 20200303
  Transmission Date: 20200409
  Serious: Yes (Hospitalization)
  Sender: FDA-Public Use
  Company Number: None

PATIENT
  Age: 27 Month
  Sex: Female
  Weight: 8.5 kg

DRUGS (5)
  1. CISPLATIN. [Suspect]
     Active Substance: CISPLATIN
     Dates: end: 20190410
  2. DOXORUBICIN HYDROCHLORIDE. [Suspect]
     Active Substance: DOXORUBICIN HYDROCHLORIDE
     Dates: end: 20190411
  3. 5-FLUOROURACIL (5-FU) [Suspect]
     Active Substance: FLUOROURACIL
     Dates: end: 20190410
  4. ZINECARD [Suspect]
     Active Substance: DEXRAZOXANE HYDROCHLORIDE
     Dates: end: 20190411
  5. VINCRISTINE [Suspect]
     Active Substance: VINCRISTINE
     Dates: end: 20190423

REACTIONS (5)
  - Tachycardia [None]
  - Blood pressure increased [None]
  - Clostridium difficile infection [None]
  - Tachypnoea [None]
  - Febrile neutropenia [None]

NARRATIVE: CASE EVENT DATE: 20190428
